FAERS Safety Report 4366701-9 (Version None)
Quarter: 2004Q2

REPORT INFORMATION
  Report Type: 
  Country: None (occurrence: None)
  Receive Date: 20040527
  Receipt Date: 20040517
  Transmission Date: 20050107
  Serious: Yes (Death)
  Sender: FDA-Public Use
  Company Number: 2004S1001481

PATIENT
  Age: 51 Year
  Sex: Male

DRUGS (4)
  1. CLOZAPINE [Suspect]
     Indication: SCHIZOPHRENIA
     Dosage: 500MG Q AM ORAL
     Route: 048
     Dates: start: 20020501, end: 20040513
  2. CLOZAPINE [Suspect]
     Indication: SCHIZOPHRENIA
     Dosage: 200MG Q AM, 400MG Q HS ORAL
     Route: 048
     Dates: start: 20020501, end: 20040513
  3. BENZTROPINE MESYLATE [Concomitant]
  4. CLONAZEPAM [Concomitant]

REACTIONS (1)
  - MYOCARDIAL INFARCTION [None]
